FAERS Safety Report 12354069 (Version 2)
Quarter: 2016Q3

REPORT INFORMATION
  Report Type: Report from Study
  Country: CA (occurrence: CA)
  Receive Date: 20160511
  Receipt Date: 20160712
  Transmission Date: 20161109
  Serious: Yes (Other)
  Sender: FDA-Public Use
  Company Number: PHHY2015CA012170

PATIENT
  Sex: Male

DRUGS (1)
  1. GLEEVEC [Suspect]
     Active Substance: IMATINIB MESYLATE
     Indication: GASTROINTESTINAL STROMAL TUMOUR
     Dosage: 400 MG, QD
     Route: 048
     Dates: start: 200712

REACTIONS (5)
  - Vitamin B12 decreased [Unknown]
  - Pigmentation disorder [Unknown]
  - Second primary malignancy [Unknown]
  - Composite lymphoma [Unknown]
  - Dysphonia [Unknown]
